FAERS Safety Report 8838960 (Version 1)
Quarter: 2012Q4

REPORT INFORMATION
  Report Type: Spontaneous
  Country: US (occurrence: None)
  Receive Date: 20121011
  Receipt Date: 20121011
  Transmission Date: 20130627
  Serious: Yes (Death)
  Sender: FDA-Public Use
  Company Number: None

PATIENT
  Age: 70 Year
  Sex: Male

DRUGS (8)
  1. REVLIMID [Suspect]
     Indication: MULTIPLE MYELOMA
     Route: 048
     Dates: start: 201106, end: 201210
  2. EPOGEN [Concomitant]
  3. LOPRESSOR [Concomitant]
  4. MAXZIDE [Concomitant]
  5. LISINOPRIL [Concomitant]
  6. TERAZOSIN [Concomitant]
  7. GEMFIBROZIL [Concomitant]
  8. OMEPRAZOLE [Concomitant]

REACTIONS (1)
  - Death [None]
